FAERS Safety Report 4465987-X (Version None)
Quarter: 2004Q3

REPORT INFORMATION
  Report Type: 
  Country: None (occurrence: None)
  Receive Date: 20040930
  Receipt Date: 20040922
  Transmission Date: 20050211
  Serious: Yes (Death)
  Sender: FDA-Public Use
  Company Number: 207220

PATIENT
  Age: 72 Year
  Sex: Female

DRUGS (2)
  1. ACTILYSE(ALTEPLASE) PWDER + SOLVENT, INFUSION SOLN [Suspect]
     Indication: CEREBROVASCULAR ACCIDENT
     Dosage: 45 MG
     Dates: start: 20030304, end: 20030304
  2. ASPIRIN [Concomitant]

REACTIONS (2)
  - COMA [None]
  - QUADRIPLEGIA [None]
